FAERS Safety Report 12458046 (Version 1)
Quarter: 2016Q2

REPORT INFORMATION
  Report Type: Spontaneous
  Country: AT (occurrence: AT)
  Receive Date: 20160612
  Receipt Date: 20160612
  Transmission Date: 20160815
  Serious: Yes (Hospitalization)
  Sender: FDA-Public Use
  Company Number: AT-ROCHE-1773350

PATIENT
  Sex: Male

DRUGS (1)
  1. XOLAIR [Suspect]
     Active Substance: OMALIZUMAB
     Indication: DRUG HYPERSENSITIVITY
     Dosage: 300 MG, (3 ADMINISTRATIONS/EVERY 4 WEEKS)
     Route: 065

REACTIONS (3)
  - Off label use [Unknown]
  - Vasculitis [Unknown]
  - Necrosis [Unknown]
